FAERS Safety Report 12900992 (Version 1)
Quarter: 2016Q4

REPORT INFORMATION
  Report Type: Spontaneous
  Country: US (occurrence: FR)
  Receive Date: 20161101
  Receipt Date: 20161101
  Transmission Date: 20170207
  Serious: No
  Sender: FDA-Public Use
  Company Number: US-AKRIMAX-TIR-2016-1105

PATIENT
  Age: 41 Year
  Sex: Female

DRUGS (3)
  1. TIROSINT [Suspect]
     Active Substance: LEVOTHYROXINE SODIUM
     Indication: HYPOTHYROIDISM
     Dosage: ONE 13MCG AND ONE 25MCG CAPSULE MONDAY, WEDNESDAY AND FRIDAY
     Route: 048
     Dates: start: 201601
  2. TIROSINT [Suspect]
     Active Substance: LEVOTHYROXINE SODIUM
     Indication: HYPOTHYROIDISM
     Dosage: ONE 13MCG AND ONE 25MCG CAPSULE MONDAY, WEDNESDAY AND FRIDAY
     Route: 048
     Dates: start: 201601
  3. TIROSINT [Suspect]
     Active Substance: LEVOTHYROXINE SODIUM
     Dosage: ONE 25MCG CAPSULE TUESDAY, THURSDAY, SATURDAY AND SUNDAY
     Route: 048
     Dates: start: 201601

REACTIONS (1)
  - Blood thyroid stimulating hormone increased [Unknown]

NARRATIVE: CASE EVENT DATE: 201609
